FAERS Safety Report 6213549-6 (Version None)
Quarter: 2009Q2

REPORT INFORMATION
  Report Type: 
  Country: None (occurrence: None)
  Receive Date: 20090603
  Receipt Date: 20090528
  Transmission Date: 20091009
  Serious: Yes (Other)
  Sender: FDA-Public Use
  Company Number: US-WATSON-2007-03797

PATIENT
  Sex: Female
  Weight: 68.027 kg

DRUGS (3)
  1. LORAZEPAM [Suspect]
     Indication: ANXIETY
     Dosage: 1-2 MG, TID-QID
     Dates: start: 20060201
  2. VITAMINS [Concomitant]
     Indication: DRUG USE FOR UNKNOWN INDICATION
     Dosage: UNK, UNKNOWN
  3. CALCIUM [Concomitant]
     Indication: DRUG USE FOR UNKNOWN INDICATION
     Dosage: UNK, UNKNOWN

REACTIONS (49)
  - ANOREXIA [None]
  - ASTHENIA [None]
  - ASTHMA [None]
  - BALANCE DISORDER [None]
  - BLOOD ELECTROLYTES INCREASED [None]
  - BLOOD SODIUM DECREASED [None]
  - BLOOD SODIUM INCREASED [None]
  - BONE DISORDER [None]
  - BREAST SWELLING [None]
  - BRONCHITIS [None]
  - CEREBROVASCULAR ACCIDENT [None]
  - CLUMSINESS [None]
  - CONSTIPATION [None]
  - CONVULSION [None]
  - DEAFNESS [None]
  - DEPRESSION [None]
  - DIARRHOEA [None]
  - DIZZINESS [None]
  - DRUG INEFFECTIVE [None]
  - DYSPEPSIA [None]
  - DYSPNOEA [None]
  - ELECTROENCEPHALOGRAM ABNORMAL [None]
  - FLUID RETENTION [None]
  - GASTROINTESTINAL DISORDER [None]
  - GASTROINTESTINAL MOTILITY DISORDER [None]
  - GASTROINTESTINAL OBSTRUCTION [None]
  - HEADACHE [None]
  - HYPERTENSION [None]
  - INFLAMMATION [None]
  - INTESTINAL FUNCTIONAL DISORDER [None]
  - MIDDLE EAR EFFUSION [None]
  - MUSCLE CONTRACTURE [None]
  - MUSCLE DISORDER [None]
  - MUSCLE RIGIDITY [None]
  - MUSCLE SPASMS [None]
  - MUSCULOSKELETAL STIFFNESS [None]
  - MYALGIA [None]
  - MYOCARDIAL INFARCTION [None]
  - MYOSITIS [None]
  - NEUROGENIC BLADDER [None]
  - OEDEMA [None]
  - PHARYNGEAL OEDEMA [None]
  - SENSORY DISTURBANCE [None]
  - SHOCK [None]
  - SOMNOLENCE [None]
  - SWELLING [None]
  - TINNITUS [None]
  - TRACHEAL OEDEMA [None]
  - WEIGHT INCREASED [None]
